FAERS Safety Report 12013285 (Version 1)
Quarter: 2016Q1

REPORT INFORMATION
  Report Type: Report from Study
  Country: US (occurrence: US)
  Receive Date: 20160205
  Receipt Date: 20160205
  Transmission Date: 20160526
  Serious: No
  Sender: FDA-Public Use
  Company Number: US-ABBVIE-15K-163-1449756-00

PATIENT
  Age: 64 Year
  Sex: Female

DRUGS (2)
  1. HUMIRA [Suspect]
     Active Substance: ADALIMUMAB
     Indication: PSORIATIC ARTHROPATHY
     Route: 065
     Dates: start: 201503, end: 201503
  2. HUMIRA [Suspect]
     Active Substance: ADALIMUMAB
     Route: 065
     Dates: start: 2015, end: 201507

REACTIONS (6)
  - Chest pain [Recovered/Resolved]
  - Musculoskeletal pain [Unknown]
  - Bronchitis [Recovered/Resolved]
  - Diarrhoea [Recovering/Resolving]
  - Bronchitis [Recovered/Resolved]
  - Abdominal pain upper [Recovering/Resolving]

NARRATIVE: CASE EVENT DATE: 201503
